FAERS Safety Report 5012054-2 (Version None)
Quarter: 2006Q2

REPORT INFORMATION
  Report Type: 
  Country: None (occurrence: None)
  Receive Date: 20060526
  Receipt Date: 20060511
  Transmission Date: 20061013
  Serious: Yes (Hospitalization, Disabling)
  Sender: FDA-Public Use
  Company Number: JP-JPN-A200601529

PATIENT
  Age: 84 Year
  Sex: Male
  Weight: 53 kg

DRUGS (2)
  1. VALTREX [Suspect]
     Indication: HERPES ZOSTER
     Dosage: 1000MG THREE TIMES PER DAY
     Route: 048
     Dates: start: 20060502, end: 20060504
  2. HYPEN [Suspect]
     Indication: FEMUR FRACTURE
     Dosage: 200MG TWICE PER DAY
     Route: 048
     Dates: start: 20060430, end: 20060504

REACTIONS (2)
  - DELIRIUM [None]
  - RENAL DISORDER [None]
